FAERS Safety Report 5647553-3 (Version None)
Quarter: 2008Q1

REPORT INFORMATION
  Report Type: 
  Country: None (occurrence: None)
  Receive Date: 20080131
  Receipt Date: 20071224
  Transmission Date: 20080703
  Serious: No
  Sender: FDA-Public Use
  Company Number: 163-21880-07121374

PATIENT
  Age: 64 Year
  Sex: Female

DRUGS (2)
  1. REVLIMID [Suspect]
     Indication: MULTIPLE MYELOMA
     Dosage: 25 MG X 21DAYS QHS, ORAL
     Route: 048
     Dates: start: 20070920
  2. DEXAMETHASONE TAB [Concomitant]

REACTIONS (1)
  - HYPOMENORRHOEA [None]
